FAERS Safety Report 21961076 (Version 1)
Quarter: 2023Q1

REPORT INFORMATION
  Report Type: Spontaneous
  Country: US (occurrence: US)
  Receive Date: 20230207
  Receipt Date: 20230207
  Transmission Date: 20230417
  Serious: Yes (Other)
  Sender: FDA-Public Use
  Company Number: US-Hikma Pharmaceuticals USA Inc.-US-H14001-23-00270

PATIENT
  Age: 39 Year
  Sex: Female

DRUGS (11)
  1. BUTORPHANOL [Suspect]
     Active Substance: BUTORPHANOL
     Indication: Cancer pain
     Dosage: 2 MG IN DIVIDED DOSES, ALSO REPORTED AS 0.5 MG X 3 (MORPHINE EQUIVALENT DOSING (MED) 10.5 MG)
     Route: 042
  2. BUTORPHANOL [Suspect]
     Active Substance: BUTORPHANOL
     Route: 042
  3. FAMOTIDINE [Concomitant]
     Active Substance: FAMOTIDINE
     Indication: Product used for unknown indication
     Route: 048
  4. ACETAMINOPHEN [Concomitant]
     Active Substance: ACETAMINOPHEN
     Indication: Cancer pain
     Route: 048
  5. ACETAMINOPHEN [Concomitant]
     Active Substance: ACETAMINOPHEN
     Route: 048
  6. HEPARIN [Concomitant]
     Active Substance: HEPARIN SODIUM
     Indication: Product used for unknown indication
     Route: 058
  7. IBUPROFEN [Concomitant]
     Active Substance: IBUPROFEN
     Indication: Cancer pain
     Route: 048
  8. ONDANSETRON [Concomitant]
     Active Substance: ONDANSETRON
     Indication: Product used for unknown indication
     Route: 042
  9. ONDANSETRON [Concomitant]
     Active Substance: ONDANSETRON
     Route: 048
  10. KETOROLAC [Concomitant]
     Active Substance: KETOROLAC TROMETHAMINE
     Indication: Cancer pain
     Dosage: UNKNOWN
     Route: 065
  11. KETOROLAC [Concomitant]
     Active Substance: KETOROLAC TROMETHAMINE
     Route: 042

REACTIONS (11)
  - Unresponsive to stimuli [Recovering/Resolving]
  - Delirium [Not Recovered/Not Resolved]
  - Anticholinergic syndrome [Not Recovered/Not Resolved]
  - Condition aggravated [Not Recovered/Not Resolved]
  - Lethargy [Recovering/Resolving]
  - Somnolence [Recovered/Resolved]
  - Urinary retention [Not Recovered/Not Resolved]
  - Miosis [Unknown]
  - Feeling abnormal [Not Recovered/Not Resolved]
  - Toxicity to various agents [Not Recovered/Not Resolved]
  - Overdose [Recovered/Resolved]
